FAERS Safety Report 8415026-0 (Version None)
Quarter: 2012Q2

REPORT INFORMATION
  Report Type: 
  Country: None (occurrence: None)
  Receive Date: 20120606
  Receipt Date: 20120524
  Transmission Date: 20120825
  Serious: Yes (Hospitalization)
  Sender: FDA-Public Use
  Company Number: CN-JNJFOC-20120520896

PATIENT
  Age: 26 Year
  Sex: Female

DRUGS (1)
  1. RISPERDAL [Suspect]
     Indication: PRODUCT USED FOR UNKNOWN INDICATION
     Dosage: 98 TABLETS
     Route: 048

REACTIONS (13)
  - VOMITING [None]
  - MULTI-ORGAN DISORDER [None]
  - PALPITATIONS [None]
  - LOSS OF CONSCIOUSNESS [None]
  - FEELING ABNORMAL [None]
  - ABDOMINAL PAIN UPPER [None]
  - OVERDOSE [None]
  - CHEST DISCOMFORT [None]
  - MUSCLE RIGIDITY [None]
  - MUSCLE SPASMS [None]
  - TREMOR [None]
  - DIARRHOEA [None]
  - AKATHISIA [None]
